FAERS Safety Report 19673973 (Version 1)
Quarter: 2021Q3

REPORT INFORMATION
  Report Type: Spontaneous
  Country: US (occurrence: US)
  Receive Date: 20210809
  Receipt Date: 20210809
  Transmission Date: 20211014
  Serious: No
  Sender: FDA-Public Use
  Company Number: US-ROCHE-2825069

PATIENT
  Sex: Female
  Weight: 41.95 kg

DRUGS (1)
  1. PERJETA [Suspect]
     Active Substance: PERTUZUMAB
     Indication: BREAST CANCER
     Route: 042
     Dates: start: 202010

REACTIONS (12)
  - Weight decreased [Unknown]
  - Blood glucose increased [Unknown]
  - Osteoporosis [Unknown]
  - Amnesia [Not Recovered/Not Resolved]
  - Body height decreased [Unknown]
  - White blood cell count decreased [Not Recovered/Not Resolved]
  - Fatigue [Recovering/Resolving]
  - Weight increased [Recovering/Resolving]
  - Alopecia [Recovering/Resolving]
  - Taste disorder [Unknown]
  - Paraesthesia [Not Recovered/Not Resolved]
  - Dysgeusia [Unknown]
